FAERS Safety Report 7677606-X (Version None)
Quarter: 2011Q3

REPORT INFORMATION
  Report Type: 
  Country: None (occurrence: None)
  Receive Date: 20110811
  Receipt Date: 20110811
  Transmission Date: 20111222
  Serious: Yes (Life-Threatening, Hospitalization, Disabling)
  Sender: FDA-Public Use
  Company Number: None

PATIENT
  Sex: Male
  Weight: 80 kg

DRUGS (1)
  1. PROPECIA [Suspect]
     Indication: ALOPECIA
     Dosage: 1 MG
     Route: 048
     Dates: start: 20010130, end: 20031101

REACTIONS (7)
  - IMPAIRED WORK ABILITY [None]
  - MOVEMENT DISORDER [None]
  - LOSS OF LIBIDO [None]
  - MUSCLE TWITCHING [None]
  - TESTICULAR DISORDER [None]
  - SLEEP DISORDER [None]
  - FATIGUE [None]
